FAERS Safety Report 21555751 (Version 1)
Quarter: 2022Q4

REPORT INFORMATION
  Report Type: Spontaneous
  Country: TR (occurrence: TR)
  Receive Date: 20221104
  Receipt Date: 20221104
  Transmission Date: 20230112
  Serious: Yes (Other)
  Sender: FDA-Public Use
  Company Number: TR-ELI_LILLY_AND_COMPANY-TR202210014544

PATIENT
  Age: 12 Year
  Sex: Male

DRUGS (5)
  1. STRATTERA [Suspect]
     Active Substance: ATOMOXETINE HYDROCHLORIDE
     Indication: Attention deficit hyperactivity disorder
     Dosage: UNK, UNKNOWN
     Route: 065
  2. OLANZAPINE [Suspect]
     Active Substance: OLANZAPINE
     Indication: Irritability
     Dosage: 5 MG, UNKNOWN
     Route: 065
  3. ARIPIPRAZOLE [Concomitant]
     Active Substance: ARIPIPRAZOLE
     Indication: Irritability
     Dosage: 5 MG
  4. ARIPIPRAZOLE [Concomitant]
     Active Substance: ARIPIPRAZOLE
     Dosage: 10 MG
  5. RISPERIDONE [Concomitant]
     Active Substance: RISPERIDONE
     Indication: Irritability
     Dosage: 1.5 MG

REACTIONS (4)
  - Suicide attempt [Recovered/Resolved]
  - Self-destructive behaviour [Recovered/Resolved]
  - Anger [Recovering/Resolving]
  - Hepatic enzyme increased [Unknown]
